FAERS Safety Report 8176873-6 (Version None)
Quarter: 2012Q1

REPORT INFORMATION
  Report Type: 
  Country: None (occurrence: None)
  Receive Date: 20120228
  Receipt Date: 20120214
  Transmission Date: 20120608
  Serious: Yes (Hospitalization)
  Sender: FDA-Public Use
  Company Number: TCI2012A00311

PATIENT
  Age: 85 Year
  Sex: Male

DRUGS (8)
  1. ACTOS [Suspect]
     Indication: DIABETES MELLITUS
     Dosage: 30 MG (30 MG,1 IN 1 D) PER ORAL
     Route: 048
     Dates: start: 20101217
  2. ENALAPRIL MALEATE [Concomitant]
  3. MICAMLO AP (TELMISARTAN/AMLODIPINE BESILATE) (ANGIOTENSIN II ANTAGONIS [Concomitant]
  4. WARFARIN SODIUM [Concomitant]
  5. LASIX [Concomitant]
  6. CRESTOR [Concomitant]
  7. METFORMIN HYDROCHLORIDE [Concomitant]
  8. GLACTIVE (SITAGLIPTIN PHOSPHATE) [Concomitant]

REACTIONS (3)
  - PLEURAL EFFUSION [None]
  - PNEUMONIA [None]
  - CARDIAC FAILURE [None]
